FAERS Safety Report 5040415-4 (Version None)
Quarter: 2006Q2

REPORT INFORMATION
  Report Type: 
  Country: None (occurrence: None)
  Receive Date: 20060630
  Receipt Date: 20060620
  Transmission Date: 20061013
  Serious: Yes (Hospitalization)
  Sender: FDA-Public Use
  Company Number: FR-GLAXOSMITHKLINE-B0428341A

PATIENT
  Age: 44 Year
  Sex: Male

DRUGS (2)
  1. ALKERAN [Suspect]
     Dosage: 255MG PER DAY
     Route: 042
     Dates: start: 20060326, end: 20060326
  2. BUSULFAN [Suspect]
     Dosage: 208MG PER DAY
     Route: 042
     Dates: start: 20060322, end: 20060326

REACTIONS (6)
  - BLOOD ALKALINE PHOSPHATASE INCREASED [None]
  - BONE MARROW FAILURE [None]
  - DRUG ADMINISTRATION ERROR [None]
  - GAMMA-GLUTAMYLTRANSFERASE INCREASED [None]
  - MUCOSAL INFLAMMATION [None]
  - TRANSAMINASES INCREASED [None]
